FAERS Safety Report 5961161-6 (Version None)
Quarter: 2008Q4

REPORT INFORMATION
  Report Type: 
  Country: None (occurrence: None)
  Receive Date: 20081119
  Receipt Date: 20081031
  Transmission Date: 20090506
  Serious: Yes (Other)
  Sender: FDA-Public Use
  Company Number: 20097

PATIENT
  Age: 64 Year
  Sex: Female

DRUGS (9)
  1. PAMIDRONATE DISODIUM [Suspect]
     Dates: start: 20040101
  2. ACLASTA [Suspect]
     Indication: OSTEOPOROSIS
     Dates: start: 20080215
  3. CLOPIDOGRAL HYDROGEN SULPHATE [Concomitant]
  4. DILTIAZEM [Concomitant]
  5. ISOSORBIDE DINITRATE [Suspect]
  6. OMEPRAZOLE [Suspect]
  7. SIMVASTATIN [Concomitant]
  8. ASPIRIN [Concomitant]
  9. ATENOLOL [Concomitant]

REACTIONS (6)
  - GINGIVAL DISORDER [None]
  - OSTEONECROSIS [None]
  - PAIN IN JAW [None]
  - POST PROCEDURAL INFECTION [None]
  - SWELLING [None]
  - TOOTH EXTRACTION [None]
